FAERS Safety Report 6336276-3 (Version None)
Quarter: 2009Q3

REPORT INFORMATION
  Report Type: 
  Country: None (occurrence: None)
  Receive Date: 20090901
  Receipt Date: 20090828
  Transmission Date: 20100115
  Serious: Yes (Life-Threatening, Hospitalization, Other)
  Sender: FDA-Public Use
  Company Number: PHHY2009BR36493

PATIENT
  Age: 26 Year
  Sex: Male

DRUGS (1)
  1. FORASEQ [Suspect]
     Indication: DYSPNOEA
     Dosage: 12/400 MCG 60/60, 1 INHALATION WITH EACH ACTIVE PRINCIPLE, TWICE A DAY,

REACTIONS (6)
  - ABSCESS DRAINAGE [None]
  - EXCORIATION [None]
  - HAEMORRHAGE [None]
  - ROAD TRAFFIC ACCIDENT [None]
  - SPLENECTOMY [None]
  - SPLENIC RUPTURE [None]
